FAERS Safety Report 19813373 (Version 1)
Quarter: 2021Q3

REPORT INFORMATION
  Report Type: Report from Study
  Country: BR (occurrence: BR)
  Receive Date: 20210910
  Receipt Date: 20210910
  Transmission Date: 20211014
  Serious: Yes (Congenital Anomaly)
  Sender: FDA-Public Use
  Company Number: BR-MYLANLABS-2021M1061108

PATIENT

DRUGS (3)
  1. LAMIVUDINE/TENOFOVIR DISOPROXIL [Suspect]
     Active Substance: LAMIVUDINE\TENOFOVIR DISOPROXIL FUMARATE
     Indication: HIV INFECTION
     Dosage: 600 MILLIGRAM, QD (COURSE 1)
     Route: 064
     Dates: start: 20180215
  2. TIVICAY [Suspect]
     Active Substance: DOLUTEGRAVIR SODIUM
     Indication: HIV INFECTION
     Dosage: 50 MILLIGRAM, QD (COURSE 1)
     Route: 064
     Dates: start: 20180215, end: 20181108
  3. ISENTRESS [Suspect]
     Active Substance: RALTEGRAVIR POTASSIUM
     Indication: HIV INFECTION
     Dosage: 800 MILLIGRAM, QD (COURSE 1)
     Route: 064
     Dates: start: 20181108

REACTIONS (3)
  - Transient neonatal pustular melanosis [Unknown]
  - Congenital melanocytic naevus [Unknown]
  - Foetal exposure during pregnancy [Recovered/Resolved]
